FAERS Safety Report 11218745 (Version 1)
Quarter: 2015Q2

REPORT INFORMATION
  Report Type: Spontaneous
  Country: US (occurrence: US)
  Receive Date: 20150625
  Receipt Date: 20150625
  Transmission Date: 20150821
  Serious: Yes (Hospitalization, Disabling, Other)
  Sender: FDA-Public Use
  Company Number: US-009507513-1204USA02915

PATIENT
  Sex: Female

DRUGS (3)
  1. FOSAMAX [Suspect]
     Active Substance: ALENDRONATE SODIUM
     Indication: OSTEOPOROSIS
     Dosage: 10 MG, UNK
     Route: 048
     Dates: start: 199701, end: 20010216
  2. FOSAMAX [Suspect]
     Active Substance: ALENDRONATE SODIUM
     Indication: OSTEOPENIA
     Dosage: 70 MG, UNK
     Route: 048
     Dates: start: 20010312, end: 20060303
  3. FOSAMAX [Suspect]
     Active Substance: ALENDRONATE SODIUM
     Route: 048
     Dates: start: 199701, end: 200603

REACTIONS (11)
  - Bone disorder [Unknown]
  - Osteoporosis [Unknown]
  - Hypertension [Unknown]
  - Hypocholesterolaemia [Unknown]
  - Femur fracture [Unknown]
  - Surgery [Unknown]
  - Hypothyroidism [Unknown]
  - Knee deformity [Unknown]
  - Back pain [Not Recovered/Not Resolved]
  - Osteoarthritis [Unknown]
  - Intramedullary rod insertion [Unknown]

NARRATIVE: CASE EVENT DATE: 20090825
